FAERS Safety Report 6821124-5 (Version None)
Quarter: 2010Q3

REPORT INFORMATION
  Report Type: 
  Country: None (occurrence: None)
  Receive Date: 20100707
  Receipt Date: 20080117
  Transmission Date: 20110219
  Serious: No
  Sender: FDA-Public Use
  Company Number: US-PFIZER INC-2008006077

PATIENT
  Sex: Male
  Weight: 61.23 kg

DRUGS (11)
  1. ZOLOFT [Suspect]
     Indication: DEPRESSION
     Route: 048
     Dates: end: 20080117
  2. SERTRALINE HCL [Suspect]
     Indication: DEPRESSION
     Route: 048
  3. METHOTREXATE [Concomitant]
  4. SULFASALAZINE [Concomitant]
     Indication: COLITIS
  5. FOLIC ACID [Concomitant]
  6. VITAMIN B6 [Concomitant]
  7. VITAMIN B-12 [Concomitant]
  8. PSYLLIUM [Concomitant]
     Indication: COLITIS
  9. MULTI-VITAMINS [Concomitant]
  10. CITRUCEL [Concomitant]
     Indication: BLOOD CALCIUM
  11. SYNTHROID [Concomitant]

REACTIONS (3)
  - DECREASED APPETITE [None]
  - FATIGUE [None]
  - WEIGHT DECREASED [None]
